FAERS Safety Report 19264613 (Version 1)
Quarter: 2021Q2

REPORT INFORMATION
  Report Type: Spontaneous
  Country: US (occurrence: US)
  Receive Date: 20210517
  Receipt Date: 20210517
  Transmission Date: 20210717
  Serious: Yes (Hospitalization)
  Sender: FDA-Public Use
  Company Number: None

PATIENT
  Age: 34 Year
  Sex: Female

DRUGS (1)
  1. CBD PRODUCT [Suspect]
     Active Substance: CANNABIDIOL

REACTIONS (4)
  - Respiratory distress [None]
  - Drug abuse [None]
  - Lethargy [None]
  - Tremor [None]

NARRATIVE: CASE EVENT DATE: 20210509
